FAERS Safety Report 18282698 (Version 6)
Quarter: 2021Q2

REPORT INFORMATION
  Report Type: Report from Study
  Country: US (occurrence: US)
  Receive Date: 20200918
  Receipt Date: 20210630
  Transmission Date: 20210717
  Serious: Yes (Other)
  Sender: FDA-Public Use
  Company Number: US-MYLANLABS-2020M1072391

PATIENT
  Age: 54 Year
  Sex: Female
  Weight: 93 kg

DRUGS (3)
  1. GLATIRAMER ACETATE INJECTION [Suspect]
     Active Substance: GLATIRAMER ACETATE
     Dosage: 40 MILLIGRAM, 3XW
     Route: 058
  2. GLATIRAMER ACETATE INJECTION [Suspect]
     Active Substance: GLATIRAMER ACETATE
     Dosage: 40 MILLIGRAM, 3XW
     Route: 058
  3. GLATIRAMER ACETATE INJECTION [Suspect]
     Active Substance: GLATIRAMER ACETATE
     Indication: RELAPSING-REMITTING MULTIPLE SCLEROSIS
     Dosage: 40 MILLIGRAM, 3XW
     Route: 058
     Dates: start: 20200812

REACTIONS (15)
  - Narcolepsy [Unknown]
  - Dysphonia [Unknown]
  - Injection site bruising [Recovered/Resolved]
  - Weight increased [Recovered/Resolved]
  - Chest pain [Unknown]
  - Injection site erythema [Recovered/Resolved]
  - Weight decreased [Unknown]
  - Injection site pain [Recovered/Resolved]
  - Injection site ulcer [Unknown]
  - Injection site urticaria [Recovered/Resolved]
  - Injection site swelling [Unknown]
  - Injection site mass [Unknown]
  - Disorientation [Unknown]
  - Alopecia [Recovered/Resolved]
  - Insomnia [Unknown]

NARRATIVE: CASE EVENT DATE: 202008
